FAERS Safety Report 13689234 (Version 1)
Quarter: 2017Q2

REPORT INFORMATION
  Report Type: Spontaneous
  Country: US (occurrence: US)
  Receive Date: 20170625
  Receipt Date: 20170625
  Transmission Date: 20170830
  Serious: Yes (Life-Threatening, Hospitalization, Disabling)
  Sender: FDA-Public Use
  Company Number: None

PATIENT
  Age: 31 Year
  Sex: Female
  Weight: 78.75 kg

DRUGS (3)
  1. CLONZEPAM [Suspect]
     Active Substance: CLONAZEPAM
     Indication: PANIC DISORDER
     Dosage: ?          OTHER STRENGTH:MG;QUANTITY:128 TABLET(S);?
     Route: 048
     Dates: start: 20080625
  2. EPSOM SALT [Concomitant]
     Active Substance: MAGNESIUM SULFATE
  3. CLONZEPAM [Suspect]
     Active Substance: CLONAZEPAM
     Indication: ANXIETY
     Dosage: ?          OTHER STRENGTH:MG;QUANTITY:128 TABLET(S);?
     Route: 048
     Dates: start: 20080625

REACTIONS (2)
  - Suicide attempt [None]
  - Drug withdrawal syndrome [None]

NARRATIVE: CASE EVENT DATE: 20110627
